FAERS Safety Report 13005858 (Version 2)
Quarter: 2016Q4

REPORT INFORMATION
  Report Type: Spontaneous
  Country: GB (occurrence: GB)
  Receive Date: 20161207
  Receipt Date: 20161214
  Transmission Date: 20170207
  Serious: Yes (Death, Hospitalization)
  Sender: FDA-Public Use
  Company Number: GB-PFIZER INC-2016562382

PATIENT
  Age: 44 Year
  Sex: Male

DRUGS (2)
  1. BAXTER WATER FOR INJECTION [Suspect]
     Active Substance: WATER
     Indication: MEDICATION DILUTION
     Route: 058
     Dates: start: 20161011, end: 201611
  2. DEFEROXAMINE MESILATE [Suspect]
     Active Substance: DEFEROXAMINE MESYLATE
     Dosage: 5 TIMES A WEEK
     Route: 058
     Dates: start: 20161011, end: 201611

REACTIONS (3)
  - Infection [Unknown]
  - Death [Fatal]
  - Asthenia [Unknown]

NARRATIVE: CASE EVENT DATE: 20161031
